FAERS Safety Report 5388965-5 (Version None)
Quarter: 2007Q3

REPORT INFORMATION
  Report Type: 
  Country: None (occurrence: None)
  Receive Date: 20070717
  Receipt Date: 20070710
  Transmission Date: 20080115
  Serious: Yes (Other)
  Sender: FDA-Public Use
  Company Number: PHBS2007ES10430

PATIENT
  Age: 32 Year
  Sex: Female

DRUGS (5)
  1. CARBAMAZEPINE [Suspect]
  2. CLONAZEPAM [Concomitant]
  3. REBUXETINE [Concomitant]
  4. SULBUTIAMINE [Concomitant]
  5. CELECOXIB [Concomitant]
     Indication: ARTHRALGIA

REACTIONS (10)
  - ASPARTATE AMINOTRANSFERASE INCREASED [None]
  - ERYTHEMA [None]
  - GAMMA-GLUTAMYLTRANSFERASE INCREASED [None]
  - HYPERTRICHOSIS [None]
  - PORPHYRIA NON-ACUTE [None]
  - PORPHYRINS URINE INCREASED [None]
  - SKIN EROSION [None]
  - SKIN HYPERPIGMENTATION [None]
  - TRANSAMINASES INCREASED [None]
  - URINE COLOUR ABNORMAL [None]
